FAERS Safety Report 5712087-4 (Version None)
Quarter: 2008Q2

REPORT INFORMATION
  Report Type: 
  Country: None (occurrence: None)
  Receive Date: 20080417
  Receipt Date: 20080407
  Transmission Date: 20081010
  Serious: Yes (Hospitalization)
  Sender: FDA-Public Use
  Company Number: 2008-02289

PATIENT
  Age: 33 Year
  Sex: Male

DRUGS (4)
  1. TRAMADOL HCL [Suspect]
     Indication: OVERDOSE
     Dosage: MAXIMAL INJESTION OF 10 G, ORAL
     Route: 048
  2. CLONAZEPAM [Suspect]
     Indication: DRUG USE FOR UNKNOWN INDICATION
     Dosage: MAXIMAL INGESTION OF 80MG, ORAL
     Route: 048
  3. GABAPENTIN [Suspect]
     Indication: DRUG USE FOR UNKNOWN INDICATION
     Dosage: MAXIMAL INGESTION OF 1G, ORAL
     Route: 048
  4. HYDROXYZINE HYDROCHLORIDE [Suspect]
     Indication: DRUG USE FOR UNKNOWN INDICATION
     Dosage: MAXIMAL INGESTION OF 6 G, ORAL
     Route: 048

REACTIONS (3)
  - CARDIAC ARREST [None]
  - OVERDOSE [None]
  - SHOCK [None]
